FAERS Safety Report 9239050 (Version 1)
Quarter: 2013Q2

REPORT INFORMATION
  Report Type: Spontaneous
  Country: US (occurrence: US)
  Receive Date: 20130418
  Receipt Date: 20130418
  Transmission Date: 20140414
  Serious: Yes (Other)
  Sender: FDA-Public Use
  Company Number: US-ELI_LILLY_AND_COMPANY-US201304002926

PATIENT
  Age: 66 Year
  Sex: Female

DRUGS (3)
  1. CYMBALTA [Suspect]
     Indication: DEPRESSION
     Dosage: 30 MG, QD
     Dates: start: 2004
  2. CYMBALTA [Suspect]
     Dosage: 30 MG, QD
     Dates: start: 20130408
  3. PROZAC [Suspect]
     Indication: DEPRESSION
     Dosage: UNK
     Dates: start: 1995

REACTIONS (6)
  - Breast cancer [Unknown]
  - Cervix carcinoma [Unknown]
  - Uterine cancer [Unknown]
  - Ovarian cancer [Unknown]
  - Syncope [Unknown]
  - Hypersomnia [Unknown]
